FAERS Safety Report 13642027 (Version 1)
Quarter: 2017Q2

REPORT INFORMATION
  Report Type: Spontaneous
  Country: CA (occurrence: CA)
  Receive Date: 20170612
  Receipt Date: 20170612
  Transmission Date: 20170830
  Serious: Yes (Other)
  Sender: FDA-Public Use
  Company Number: CA-TEVA-776435ACC

PATIENT
  Age: 50 Year
  Sex: Female

DRUGS (2)
  1. TEVA-SPIRONOLACTONE [Suspect]
     Active Substance: SPIRONOLACTONE
     Indication: PERIPHERAL SWELLING
     Dosage: .5 DOSAGE FORMS DAILY;
     Route: 048
  2. TEVA-SPIRONOLACTONE [Suspect]
     Active Substance: SPIRONOLACTONE
     Indication: HYPERTENSION

REACTIONS (1)
  - Pain in extremity [Recovered/Resolved]
